FAERS Safety Report 9049425 (Version 1)
Quarter: 2013Q1

REPORT INFORMATION
  Report Type: Other
  Country: GB (occurrence: GB)
  Receive Date: 20130205
  Receipt Date: 20130205
  Transmission Date: 20140127
  Serious: Yes (Other)
  Sender: FDA-Public Use
  Company Number: GB-WATSON-2013-01535

PATIENT
  Age: 26 Year
  Sex: Female

DRUGS (1)
  1. ACYCLOVIR (UNKNOWN) [Suspect]
     Indication: PRODUCT USED FOR UNKNOWN INDICATION
     Dosage: 200 MG, 5 TIMES PER DAY
     Route: 048
     Dates: start: 20130104, end: 20130113

REACTIONS (3)
  - Hallucination [Not Recovered/Not Resolved]
  - Abdominal pain [Not Recovered/Not Resolved]
  - Expired drug administered [Recovered/Resolved]
